FAERS Safety Report 16116477 (Version 1)
Quarter: 2019Q1

REPORT INFORMATION
  Report Type: Spontaneous
  Country: FR (occurrence: FR)
  Receive Date: 20190326
  Receipt Date: 20190326
  Transmission Date: 20190418
  Serious: Yes (Hospitalization)
  Sender: FDA-Public Use
  Company Number: FR-ADIENNEP-2019AD000138

PATIENT
  Age: 13 Year
  Sex: Female
  Weight: 26.4 kg

DRUGS (3)
  1. BACTRIM [Concomitant]
     Active Substance: SULFAMETHOXAZOLE\TRIMETHOPRIM
  2. TEPADINA [Suspect]
     Active Substance: THIOTEPA
     Indication: GERM CELL CANCER
     Dosage: 310 MG
     Route: 041
     Dates: start: 20180223, end: 20180225
  3. ETOPOPHOS [Suspect]
     Active Substance: ETOPOSIDE PHOSPHATE
     Indication: GERM CELL CANCER
     Dosage: 520 MG DAILY
     Route: 041
     Dates: start: 20180223, end: 20180225

REACTIONS (3)
  - Influenza [Recovered/Resolved]
  - Starvation [Recovered/Resolved]
  - Mucosal inflammation [Recovered/Resolved]

NARRATIVE: CASE EVENT DATE: 201802
